FAERS Safety Report 8183847-8 (Version None)
Quarter: 2012Q1

REPORT INFORMATION
  Report Type: 
  Country: None (occurrence: None)
  Receive Date: 20120305
  Receipt Date: 20120220
  Transmission Date: 20120608
  Serious: Yes (Death)
  Sender: FDA-Public Use
  Company Number: US-MYLANLABS-2012S1004648

PATIENT
  Age: 3 Year
  Sex: Male

DRUGS (3)
  1. FLUDARABINE PHOSPHATE [Suspect]
     Indication: STEM CELL TRANSPLANT
  2. CAMPATH [Suspect]
     Indication: STEM CELL TRANSPLANT
  3. MELPHALAN HYDROCHLORIDE [Suspect]
     Indication: STEM CELL TRANSPLANT

REACTIONS (2)
  - RESPIRATORY DISTRESS [None]
  - BACTERIAL SEPSIS [None]
